FAERS Safety Report 14539119 (Version 1)
Quarter: 2018Q1

REPORT INFORMATION
  Report Type: Spontaneous
  Country: ES (occurrence: ES)
  Receive Date: 20180216
  Receipt Date: 20180216
  Transmission Date: 20180509
  Serious: Yes (Life-Threatening)
  Sender: FDA-Public Use
  Company Number: ES-ROCHE-2073459

PATIENT
  Age: 2 Year
  Sex: Male
  Weight: 12 kg

DRUGS (1)
  1. TAMIFLU [Suspect]
     Active Substance: OSELTAMIVIR PHOSPHATE
     Indication: INFLUENZA
     Dosage: 30 MG / 12 H (ONE SINGLE DOSAGE)?STRENGTH: 6 MG /ML
     Route: 048
     Dates: start: 20180117, end: 20180117

REACTIONS (3)
  - Bradyarrhythmia [Recovering/Resolving]
  - Somnolence [Recovering/Resolving]
  - Sinus node dysfunction [Recovering/Resolving]

NARRATIVE: CASE EVENT DATE: 20180117
